FAERS Safety Report 5145553-3 (Version None)
Quarter: 2006Q4

REPORT INFORMATION
  Report Type: 
  Country: None (occurrence: None)
  Receive Date: 20061101
  Receipt Date: 20061025
  Transmission Date: 20070319
  Serious: Yes (Death)
  Sender: FDA-Public Use
  Company Number: 163-21880-06040453

PATIENT
  Age: 96 Year
  Sex: Male

DRUGS (3)
  1. REVLIMID [Suspect]
     Indication: MYELODYSPLASTIC SYNDROME
     Dosage: 10 MG, 1 IN 1 D, ORAL
     Route: 048
     Dates: start: 20060201, end: 20060328
  2. THALOMID [Suspect]
     Indication: MULTIPLE MYELOMA
     Dosage: 100 MG, 2 IN 1 D, ORAL
     Route: 048
     Dates: start: 20060328
  3. COUMADIN [Concomitant]

REACTIONS (6)
  - BLOOD ERYTHROPOIETIN INCREASED [None]
  - DISEASE PROGRESSION [None]
  - MYELODYSPLASTIC SYNDROME [None]
  - PROTHROMBIN TIME PROLONGED [None]
  - PULMONARY EMBOLISM [None]
  - SERUM FERRITIN INCREASED [None]
